FAERS Safety Report 7940377-3 (Version None)
Quarter: 2011Q4

REPORT INFORMATION
  Report Type: 
  Country: None (occurrence: None)
  Receive Date: 20111127
  Receipt Date: 20110511
  Transmission Date: 20120403
  Serious: No
  Sender: FDA-Public Use
  Company Number: US-ALLERGAN-1106477US

PATIENT
  Age: 63 Year
  Sex: Male

DRUGS (1)
  1. ELESTAT [Suspect]
     Indication: EYE PRURITUS
     Dosage: 1 GTT, BID
     Route: 047
     Dates: start: 20110509, end: 20110510

REACTIONS (2)
  - VISION BLURRED [None]
  - SOMNOLENCE [None]
